FAERS Safety Report 9468872 (Version 1)
Quarter: 2013Q3

REPORT INFORMATION
  Report Type: Spontaneous
  Country: GB (occurrence: GB)
  Receive Date: 20130821
  Receipt Date: 20130821
  Transmission Date: 20140515
  Serious: Yes (Other)
  Sender: FDA-Public Use
  Company Number: GB-BRISTOL-MYERS SQUIBB COMPANY-19196302

PATIENT
  Age: 29 Year
  Sex: Male
  Weight: 68 kg

DRUGS (6)
  1. ARIPIPRAZOLE [Suspect]
     Indication: PSYCHOTIC DISORDER
     Route: 048
  2. BECLOMETHASONE [Concomitant]
     Route: 055
     Dates: start: 2010
  3. DIHYDROCODEINE [Concomitant]
     Indication: PAIN
     Route: 048
     Dates: start: 2013
  4. DOXYCYCLINE [Concomitant]
     Indication: WOUND INFECTION
     Route: 048
     Dates: start: 2013
  5. LACTULOSE [Concomitant]
     Indication: CONSTIPATION
     Route: 048
     Dates: start: 2012
  6. PROCYCLIDINE [Concomitant]
     Indication: EXTRAPYRAMIDAL DISORDER
     Route: 048
     Dates: start: 2010

REACTIONS (2)
  - Oedema peripheral [Recovering/Resolving]
  - Joint swelling [Recovering/Resolving]
